FAERS Safety Report 24129626 (Version 3)
Quarter: 2025Q1

REPORT INFORMATION
  Report Type: Report from Study
  Country: JP (occurrence: JP)
  Receive Date: 20240724
  Receipt Date: 20250114
  Transmission Date: 20250409
  Serious: Yes (Other)
  Sender: TAKEDA
  Company Number: JP-TAKEDA-2024TJP011004

PATIENT
  Age: 13 Year
  Sex: Male

DRUGS (8)
  1. LISDEXAMFETAMINE DIMESYLATE [Suspect]
     Active Substance: LISDEXAMFETAMINE DIMESYLATE
     Indication: Attention deficit hyperactivity disorder
     Dosage: 20 MILLIGRAM, QD
     Dates: start: 20231206, end: 20240613
  2. LISDEXAMFETAMINE DIMESYLATE [Suspect]
     Active Substance: LISDEXAMFETAMINE DIMESYLATE
     Dosage: 30 MILLIGRAM, QD
     Dates: start: 20240614, end: 20240807
  3. LISDEXAMFETAMINE DIMESYLATE [Suspect]
     Active Substance: LISDEXAMFETAMINE DIMESYLATE
     Dosage: 40 MILLIGRAM, QD
     Dates: start: 20240808
  4. RISPERIDONE [Concomitant]
     Active Substance: RISPERIDONE
  5. RISPERIDONE [Concomitant]
     Active Substance: RISPERIDONE
     Dates: start: 20231221, end: 20241030
  6. RISPERIDONE [Concomitant]
     Active Substance: RISPERIDONE
  7. ABILIFY [Concomitant]
     Active Substance: ARIPIPRAZOLE
  8. ABILIFY [Concomitant]
     Active Substance: ARIPIPRAZOLE
     Dates: start: 20240711, end: 20241030

REACTIONS (3)
  - Autism spectrum disorder [Recovering/Resolving]
  - Autism spectrum disorder [Recovering/Resolving]
  - Insomnia [Recovering/Resolving]

NARRATIVE: CASE EVENT DATE: 20231220
